FAERS Safety Report 4906897-0 (Version None)
Quarter: 2006Q1

REPORT INFORMATION
  Report Type: 
  Country: None (occurrence: None)
  Receive Date: 20060207
  Receipt Date: 20060123
  Transmission Date: 20060701
  Serious: Yes (Hospitalization)
  Sender: FDA-Public Use
  Company Number: GBR-2006-0002066

PATIENT
  Age: 70 Year
  Sex: Female

DRUGS (9)
  1. OXYCODONE HCL [Suspect]
     Indication: PAIN
     Dosage: 40 MG, BID,
  2. OXYCODONE HCL [Suspect]
     Indication: PAIN
     Dosage: 60 MG IN 24 HRS,
  3. FLUVOXAMINE MALEATE [Concomitant]
  4. DOXEPIN HCL [Concomitant]
  5. DICLOFENAC (DICLOFENAC) [Concomitant]
  6. RALOXIFENE HCL [Concomitant]
  7. CALCIUM CARBONATE (CALCIUM CARBONATE) [Concomitant]
  8. DILTIAZEM [Concomitant]
  9. SIMVASTATIN [Concomitant]

REACTIONS (20)
  - AGITATION [None]
  - ATRIAL FIBRILLATION [None]
  - BLOOD CREATINE PHOSPHOKINASE INCREASED [None]
  - BLOOD PRESSURE DIASTOLIC DECREASED [None]
  - CHILLS [None]
  - CLONUS [None]
  - CONFUSIONAL STATE [None]
  - DISTURBANCE IN ATTENTION [None]
  - DRUG INTERACTION [None]
  - HEART RATE INCREASED [None]
  - HYPERREFLEXIA [None]
  - HYPERTONIA [None]
  - MYDRIASIS [None]
  - NAUSEA [None]
  - NEUROLOGICAL SYMPTOM [None]
  - PYREXIA [None]
  - REFLEXES ABNORMAL [None]
  - RESTLESSNESS [None]
  - SEROTONIN SYNDROME [None]
  - TACHYCARDIA [None]
